FAERS Safety Report 5578143-9 (Version None)
Quarter: 2007Q4

REPORT INFORMATION
  Report Type: 
  Country: None (occurrence: None)
  Receive Date: 20071231
  Receipt Date: 20071219
  Transmission Date: 20080405
  Serious: Yes (Other)
  Sender: FDA-Public Use
  Company Number: FR-PFIZER INC-2007107096

PATIENT
  Sex: Female

DRUGS (4)
  1. AROMASIN [Suspect]
  2. X-RAY CONTRAST MEDIA, IODINATED [Interacting]
     Dates: start: 20071210, end: 20071210
  3. PAROXETINE HCL [Concomitant]
  4. LEVOTHYROXINE SODIUM [Concomitant]

REACTIONS (2)
  - DRUG INTERACTION [None]
  - URTICARIA [None]
